FAERS Safety Report 13628349 (Version 1)
Quarter: 2017Q2

REPORT INFORMATION
  Report Type: Spontaneous
  Country: US (occurrence: US)
  Receive Date: 20170531
  Receipt Date: 20170531
  Transmission Date: 20170830
  Serious: No
  Sender: FDA-Public Use
  Company Number: US-ASTELLAS-1013590

PATIENT
  Sex: Female

DRUGS (1)
  1. TARCEVA [Suspect]
     Active Substance: ERLOTINIB HYDROCHLORIDE
     Indication: PRODUCT USED FOR UNKNOWN INDICATION
     Route: 065
     Dates: start: 20110302

REACTIONS (13)
  - Thirst decreased [Unknown]
  - Decreased appetite [Unknown]
  - Depression [Unknown]
  - Rash [Unknown]
  - Vomiting [Unknown]
  - Gastrooesophageal reflux disease [Unknown]
  - Somnolence [Unknown]
  - Furuncle [Unknown]
  - Fatigue [Unknown]
  - Dysgeusia [Unknown]
  - Rash pruritic [Unknown]
  - Nausea [Unknown]
  - Dry skin [Unknown]
